FAERS Safety Report 5534131-X (Version None)
Quarter: 2007Q4

REPORT INFORMATION
  Report Type: 
  Country: None (occurrence: None)
  Receive Date: 20071129
  Receipt Date: 20071129
  Transmission Date: 20080405
  Serious: Yes (Hospitalization)
  Sender: FDA-Public Use
  Company Number: None

PATIENT
  Sex: Male
  Weight: 108.86 kg

DRUGS (10)
  1. VITAMIN D [Suspect]
     Dosage: 400 IU
  2. ZOMETA [Suspect]
     Dosage: 4 MG
  3. ASPIRIN [Concomitant]
  4. ATIVAN [Concomitant]
  5. COUMADIN [Concomitant]
  6. LISINOPRIL [Concomitant]
  7. MORPHINE [Concomitant]
  8. NEURONTIN [Concomitant]
  9. PHENERGAN HCL [Concomitant]
  10. VERAPAMIL [Concomitant]

REACTIONS (15)
  - ATRIAL FIBRILLATION [None]
  - BRONCHITIS [None]
  - BUNDLE BRANCH BLOCK [None]
  - CHRONIC OBSTRUCTIVE PULMONARY DISEASE [None]
  - COLON ADENOMA [None]
  - COLONIC POLYP [None]
  - FLUID OVERLOAD [None]
  - GASTROINTESTINAL HAEMORRHAGE [None]
  - HAEMOPTYSIS [None]
  - HYPOTENSION [None]
  - METASTASES TO BONE [None]
  - PITTING OEDEMA [None]
  - RESPIRATORY RATE INCREASED [None]
  - SPINAL DISORDER [None]
  - STAPHYLOCOCCAL INFECTION [None]
